FAERS Safety Report 13884336 (Version 2)
Quarter: 2017Q3

REPORT INFORMATION
  Report Type: Spontaneous
  Country: US (occurrence: US)
  Receive Date: 20170821
  Receipt Date: 20170821
  Transmission Date: 20171127
  Serious: No
  Sender: FDA-Public Use
  Company Number: US-CIPLA LTD.-2016US19880

PATIENT

DRUGS (4)
  1. TERBINAFINE HYDROCHLORIDE. [Suspect]
     Active Substance: TERBINAFINE HYDROCHLORIDE
     Dosage: UNK, 1 TABLET, QD
     Route: 065
     Dates: start: 20161012
  2. TERBINAFINE HYDROCHLORIDE. [Suspect]
     Active Substance: TERBINAFINE HYDROCHLORIDE
     Dosage: UNK, FULL PILL (1 TABLET) ONCE A DAY
     Route: 065
     Dates: start: 20160823
  3. TERBINAFINE HYDROCHLORIDE. [Suspect]
     Active Substance: TERBINAFINE HYDROCHLORIDE
     Dosage: UNK, 0.25 TABLET, QD
     Route: 065
  4. TERBINAFINE HYDROCHLORIDE. [Suspect]
     Active Substance: TERBINAFINE HYDROCHLORIDE
     Dosage: 0.5 TABLET, QD
     Route: 065
     Dates: start: 201610

REACTIONS (6)
  - Vision blurred [Unknown]
  - Headache [Unknown]
  - Nausea [Unknown]
  - Medication error [Unknown]
  - Abdominal discomfort [Unknown]
  - Dizziness [Unknown]

NARRATIVE: CASE EVENT DATE: 20161012
